FAERS Safety Report 4560296-2 (Version None)
Quarter: 2005Q1

REPORT INFORMATION
  Report Type: 
  Country: None (occurrence: None)
  Receive Date: 20050119
  Receipt Date: 20050119
  Transmission Date: 20050727
  Serious: Yes (Hospitalization)
  Sender: FDA-Public Use
  Company Number: None

PATIENT
  Age: 72 Year
  Sex: Male
  Weight: 57 kg

DRUGS (1)
  1. ESTRAMUSTINE [Suspect]
     Indication: PROSTATE CANCER
     Dosage: 140 MG TID PO
     Route: 048

REACTIONS (4)
  - BLOOD GLUCOSE ABNORMAL [None]
  - DEHYDRATION [None]
  - NAUSEA [None]
  - VOMITING [None]
